FAERS Safety Report 5294519-1 (Version None)
Quarter: 2007Q2

REPORT INFORMATION
  Report Type: 
  Country: None (occurrence: None)
  Receive Date: 20070409
  Receipt Date: 20070409
  Transmission Date: 20071010
  Serious: Yes (Hospitalization)
  Sender: FDA-Public Use
  Company Number: None

PATIENT
  Sex: Male
  Weight: 67 kg

DRUGS (2)
  1. FENTANYL [Suspect]
     Indication: SEDATION
     Dosage: 75 MCG ONCE IV
     Route: 042
     Dates: start: 20070213
  2. MIDAZOLAM IV [Suspect]
     Indication: SEDATION
     Dosage: 3 MG ONCE IV
     Route: 042
     Dates: start: 20070213

REACTIONS (6)
  - ANAEMIA [None]
  - BLOOD GLUCOSE INCREASED [None]
  - HAEMORRHAGE [None]
  - HYPOXIA [None]
  - POST PROCEDURAL COMPLICATION [None]
  - RESPIRATORY ARREST [None]
